FAERS Safety Report 7324654-5 (Version None)
Quarter: 2011Q1

REPORT INFORMATION
  Report Type: 
  Country: None (occurrence: None)
  Receive Date: 20110301
  Receipt Date: 20110218
  Transmission Date: 20110831
  Serious: Yes (Other)
  Sender: FDA-Public Use
  Company Number: PHHY2011US14396

PATIENT
  Age: 68 Year
  Sex: Female

DRUGS (2)
  1. GEMCITABINE [Suspect]
     Indication: ADENOCARCINOMA PANCREAS
     Dosage: UNK
  2. OXALIPLATIN [Suspect]
     Indication: ADENOCARCINOMA PANCREAS

REACTIONS (3)
  - PANCREATITIS ACUTE [None]
  - PANCREATIC MASS [None]
  - ABDOMINAL PAIN [None]
